FAERS Safety Report 6728874-X (Version None)
Quarter: 2010Q2

REPORT INFORMATION
  Report Type: 
  Country: None (occurrence: None)
  Receive Date: 20100517
  Receipt Date: 20100224
  Transmission Date: 20101027
  Serious: No
  Sender: FDA-Public Use
  Company Number: US-ABBOTT-10P-163-0628894-00

PATIENT
  Sex: Male

DRUGS (2)
  1. SIMCOR [Suspect]
     Indication: BLOOD CHOLESTEROL INCREASED
     Dosage: 500/20MG 1 IN 1 D
     Dates: start: 20100215, end: 20100223
  2. ASPIRIN [Concomitant]
     Indication: PROPHYLAXIS
     Dates: start: 20100215, end: 20100223

REACTIONS (2)
  - HEADACHE [None]
  - VOMITING [None]
